FAERS Safety Report 8186088-3 (Version None)
Quarter: 2012Q1

REPORT INFORMATION
  Report Type: 
  Country: None (occurrence: None)
  Receive Date: 20120306
  Receipt Date: 20120227
  Transmission Date: 20120608
  Serious: No
  Sender: FDA-Public Use
  Company Number: US-BIOGENIDEC-2012BI007562

PATIENT
  Age: 58 Year
  Sex: Female

DRUGS (3)
  1. TYSABRI [Suspect]
     Indication: MULTIPLE SCLEROSIS
     Route: 042
     Dates: start: 20120220
  2. AVONEX [Concomitant]
     Indication: MULTIPLE SCLEROSIS
     Route: 030
     Dates: start: 20081001
  3. AVONEX [Concomitant]
     Route: 030
     Dates: start: 20081031

REACTIONS (6)
  - PARAESTHESIA [None]
  - PERIPHERAL COLDNESS [None]
  - EYE PRURITUS [None]
  - FATIGUE [None]
  - PRURITUS [None]
  - HEADACHE [None]
